FAERS Safety Report 21046911 (Version 2)
Quarter: 2022Q3

REPORT INFORMATION
  Report Type: Spontaneous
  Country: CH (occurrence: CH)
  Receive Date: 20220706
  Receipt Date: 20220708
  Transmission Date: 20221026
  Serious: Yes (Death, Hospitalization, Other)
  Sender: FDA-Public Use
  Company Number: CH-TAKEDA-2022TEU006636

PATIENT
  Age: 56 Year
  Sex: Male

DRUGS (52)
  1. PANTOZOL [Suspect]
     Active Substance: PANTOPRAZOLE SODIUM
     Dosage: 40 MILLIGRAM, Q12H
     Route: 065
  2. MEROPENEM [Suspect]
     Active Substance: MEROPENEM
     Dosage: UNK
     Route: 065
     Dates: start: 20220115, end: 20220119
  3. MEROPENEM [Suspect]
     Active Substance: MEROPENEM
     Dosage: UNK
     Route: 065
     Dates: start: 20220206
  4. BACTRIM [Suspect]
     Active Substance: SULFAMETHOXAZOLE\TRIMETHOPRIM
     Dosage: UNK
     Route: 065
     Dates: start: 20220121, end: 20220130
  5. CEFEPIME [Suspect]
     Active Substance: CEFEPIME HYDROCHLORIDE
     Dosage: UNK
     Route: 065
     Dates: start: 20220119, end: 20220121
  6. PIPERACILLIN SODIUM\TAZOBACTAM SODIUM [Suspect]
     Active Substance: PIPERACILLIN SODIUM\TAZOBACTAM SODIUM
     Dosage: UNK
     Route: 065
     Dates: start: 20220104, end: 20220115
  7. PIPERACILLIN SODIUM\TAZOBACTAM SODIUM [Suspect]
     Active Substance: PIPERACILLIN SODIUM\TAZOBACTAM SODIUM
     Dosage: UNK
     Route: 065
     Dates: start: 20220202, end: 20220204
  8. ERYTHROMYCIN [Suspect]
     Active Substance: ERYTHROMYCIN
     Dosage: UNK
     Route: 065
  9. DAFALGAN [Suspect]
     Active Substance: ACETAMINOPHEN
     Dosage: UNK
     Route: 065
  10. CLEMASTINE FUMARATE [Suspect]
     Active Substance: CLEMASTINE FUMARATE
     Dosage: UNK
     Route: 065
  11. VALIUM [Suspect]
     Active Substance: DIAZEPAM
     Dosage: UNK
     Route: 065
  12. HEPARIN [Suspect]
     Active Substance: HEPARIN SODIUM
     Dosage: UNK
     Route: 065
  13. MEGLUMINE IOXITHALAMATE [Suspect]
     Active Substance: MEGLUMINE IOXITHALAMATE
     Dosage: UNK
     Route: 065
  14. CASIRIVIMAB\IMDEVIMAB [Suspect]
     Active Substance: CASIRIVIMAB\IMDEVIMAB
     Dosage: UNK
     Route: 065
     Dates: start: 20220106, end: 20220106
  15. SODIUM PICOSULFATE [Concomitant]
     Active Substance: SODIUM PICOSULFATE
     Dosage: 10 MILLIGRAM, QD
     Route: 048
  16. METHYLPREDNISOLONE [Concomitant]
     Active Substance: METHYLPREDNISOLONE
     Dosage: 85 MILLIGRAM, QD
     Route: 042
  17. POLYETHYLENE GLYCOLS [Concomitant]
     Active Substance: POLYETHYLENE GLYCOLS
     Dosage: UNK UNK, QD
     Route: 048
  18. VALIUM [Concomitant]
     Active Substance: DIAZEPAM
     Dosage: 5 MILLIGRAM
     Route: 048
  19. INSULIN ASPART [Concomitant]
     Active Substance: INSULIN ASPART
     Dosage: UNK
  20. KALIUMPHOSPHAT [Concomitant]
     Dosage: UNK
     Route: 065
  21. KALIUMPHOSPHAT [Concomitant]
     Dosage: UNK UNK, BID
     Route: 065
  22. SODIUM CHLORIDE [Concomitant]
     Active Substance: SODIUM CHLORIDE
     Dosage: 0.9 PERCENT
     Route: 065
  23. KCL [Concomitant]
     Active Substance: POTASSIUM CHLORIDE
     Dosage: UNK
     Route: 065
  24. MAGNESIUM SULFATE [Concomitant]
     Active Substance: MAGNESIUM SULFATE
     Dosage: UNK
     Route: 065
  25. MAGNESIUM SULFATE [Concomitant]
     Active Substance: MAGNESIUM SULFATE
     Dosage: UNK
  26. CLEMASTINE [Concomitant]
     Active Substance: CLEMASTINE
     Dosage: UNK
     Route: 065
  27. SODIUM PICOSULFATE [Concomitant]
     Active Substance: SODIUM PICOSULFATE
     Dosage: 20 GTT DROPS, QID
     Route: 048
  28. DEXAMETHASONE [Concomitant]
     Active Substance: DEXAMETHASONE
     Dosage: UNK UNK, QD
     Route: 065
  29. VITAMINS [Concomitant]
     Active Substance: VITAMINS
     Dosage: UNK UNK, QD
     Route: 065
  30. TRACUTIL [CHROMIC CHLORIDE;COPPER CHLORIDE DIHYDRATE;FERRIC CHLORIDE;M [Concomitant]
     Dosage: UNK UNK, QD
     Route: 065
  31. ERGOCALCIFEROL\PHYTONADIONE\RETINOL\TOCOPHEROL [Concomitant]
     Active Substance: ERGOCALCIFEROL\PHYTONADIONE\RETINOL\TOCOPHEROL
     Dosage: UNK UNK, QD
     Route: 065
  32. ATROVENT [Concomitant]
     Active Substance: IPRATROPIUM BROMIDE
     Dosage: UNK UNK, Q6HR (INHALATION SOLUTION)
     Route: 055
  33. CLONIDINE [Concomitant]
     Active Substance: CLONIDINE
     Dosage: 50 MICROGRAM, Q1HR
     Route: 065
  34. DEXPANTHENOL [Concomitant]
     Active Substance: DEXPANTHENOL
     Dosage: 1000 MILLIGRAM, Q6HR
     Route: 065
  35. FENTANYL [Concomitant]
     Active Substance: FENTANYL
     Dosage: 300 MICROGRAM, Q1HR
     Route: 065
  36. KETAMIN [ARKETAMINE HYDROCHLORIDE] [Concomitant]
     Dosage: 50 MILLIGRAM, Q1HR
     Route: 065
  37. DOLOPHINE [Concomitant]
     Active Substance: METHADONE HYDROCHLORIDE
     Dosage: 10 MILLIGRAM, Q6HR
     Route: 065
  38. MIDAZOLAM [Concomitant]
     Active Substance: MIDAZOLAM
     Dosage: 15 MILLIGRAM, Q6HR
     Route: 065
  39. NALOXONE HYDROCHLORIDE [Concomitant]
     Active Substance: NALOXONE HYDROCHLORIDE
     Dosage: 0.2 MILLIGRAM, Q12H
     Route: 065
  40. NEOSTIGMINE [NEOSTIGMINE METILSULFATE] [Concomitant]
     Dosage: 1000 MILLIGRAM, Q6HR
     Route: 065
  41. FRAGMIN [Concomitant]
     Active Substance: DALTEPARIN SODIUM
     Dosage: UNK UNK, QD
     Route: 065
  42. NOREPINEPHRINE [Concomitant]
     Active Substance: NOREPINEPHRINE
     Dosage: 15 MILLIGRAM, Q1HR
     Route: 065
  43. PANTOPRAZOLE SODIUM [Concomitant]
     Active Substance: PANTOPRAZOLE SODIUM
     Dosage: 40 MILLIGRAM, Q12H
     Route: 065
  44. PEPTAMEN [Concomitant]
     Dosage: 250 MILLILITER, QD
     Route: 065
  45. PRIMPERAN [Concomitant]
     Active Substance: METOCLOPRAMIDE HYDROCHLORIDE
     Dosage: 10 MILLIGRAM, Q8HR
     Route: 065
  46. PROPOFOL [Concomitant]
     Active Substance: PROPOFOL
     Dosage: 400 MILLIGRAM, Q1HR
     Route: 065
  47. ROCURONIUM [Concomitant]
     Active Substance: ROCURONIUM BROMIDE
     Dosage: 20 MILLIGRAM, Q1HR
     Route: 065
  48. AMINO ACIDS\DEXTROSE\ELECTROLYTES NOS\SOYBEAN OIL [Concomitant]
     Active Substance: AMINO ACIDS\DEXTROSE\ELECTROLYTES NOS\SOYBEAN OIL
     Dosage: 1000 MILLILITER, QD
     Route: 065
  49. VENTOLIN [Concomitant]
     Active Substance: ALBUTEROL SULFATE
     Dosage: 0.25 MILLILITER, Q6HR
     Route: 065
  50. DROPERIDOL [Concomitant]
     Active Substance: DROPERIDOL
     Dosage: UNK
     Route: 065
  51. URAPIDIL [Concomitant]
     Active Substance: URAPIDIL
     Dosage: UNK
     Route: 065
  52. ONDANSETRON [Concomitant]
     Active Substance: ONDANSETRON
     Dosage: UNK
     Route: 065

REACTIONS (2)
  - Shock [Fatal]
  - Toxic epidermal necrolysis [Recovering/Resolving]

NARRATIVE: CASE EVENT DATE: 20220130
